FAERS Safety Report 19540020 (Version 1)
Quarter: 2021Q3

REPORT INFORMATION
  Report Type: Spontaneous
  Country: KR (occurrence: KR)
  Receive Date: 20210713
  Receipt Date: 20210713
  Transmission Date: 20211014
  Serious: Yes (Other)
  Sender: FDA-Public Use
  Company Number: KR-ALLERGAN-2125476US

PATIENT
  Sex: Female

DRUGS (2)
  1. FOSFOMYCIN TROMETHAMINE ? BP [Suspect]
     Active Substance: FOSFOMYCIN TROMETHAMINE
     Dosage: 3 G,, SINGLE AT NIGHT
     Route: 048
     Dates: start: 20210702, end: 20210702
  2. FOSFOMYCIN TROMETHAMINE ? BP [Suspect]
     Active Substance: FOSFOMYCIN TROMETHAMINE
     Indication: CYSTITIS
     Dosage: 3 G, SINGLE AT NIGHT
     Route: 048
     Dates: start: 20210704, end: 20210704

REACTIONS (2)
  - Product use issue [Unknown]
  - Sudden hearing loss [Not Recovered/Not Resolved]

NARRATIVE: CASE EVENT DATE: 20210705
